FAERS Safety Report 13879465 (Version 1)
Quarter: 2017Q3

REPORT INFORMATION
  Report Type: Spontaneous
  Country: US (occurrence: US)
  Receive Date: 20170817
  Receipt Date: 20170817
  Transmission Date: 20171127
  Serious: No
  Sender: FDA-Public Use
  Company Number: US-ENDO PHARMACEUTICALS INC-2016-006714

PATIENT
  Age: 32 Year
  Sex: Female
  Weight: 72.56 kg

DRUGS (2)
  1. SUMAVEL DOSEPRO [Suspect]
     Active Substance: SUMATRIPTAN SUCCINATE
     Indication: MIGRAINE
     Dosage: INJECT 6 MG, IN ABDOMEN AS NEEDED (VARIES ON WEATHER PRESSURE)
     Route: 065
     Dates: start: 2013
  2. TOPAMAX [Concomitant]
     Active Substance: TOPIRAMATE
     Indication: MIGRAINE PROPHYLAXIS

REACTIONS (3)
  - Sinusitis [Unknown]
  - Drug dose omission [Recovered/Resolved]
  - Device malfunction [Recovered/Resolved]

NARRATIVE: CASE EVENT DATE: 20160915
